FAERS Safety Report 6691830-4 (Version None)
Quarter: 2010Q2

REPORT INFORMATION
  Report Type: 
  Country: None (occurrence: None)
  Receive Date: 20100422
  Receipt Date: 20100412
  Transmission Date: 20101027
  Serious: Yes (Hospitalization, Other)
  Sender: FDA-Public Use
  Company Number: PHEH2005US10717

PATIENT
  Sex: Female
  Weight: 53.514 kg

DRUGS (59)
  1. AREDIA [Suspect]
     Indication: METASTASES TO BONE
     Dosage: 90 MG, UNK
     Route: 042
     Dates: start: 20010101, end: 20050426
  2. MS CONTIN [Concomitant]
     Indication: BONE PAIN
     Dosage: 30 MG, Q12H
     Route: 048
     Dates: start: 20011112
  3. FASLODEX [Concomitant]
     Indication: BREAST CANCER
     Dosage: 250 MG, QMO
     Route: 030
     Dates: start: 20030318
  4. TAMOXIFEN CITRATE [Concomitant]
     Indication: BREAST CANCER
     Dates: start: 20020124
  5. ZANTAC [Concomitant]
     Dosage: 150 MG, BID
  6. NAPROSYN [Concomitant]
     Indication: ARTHRITIS
     Dosage: 500 MG, BID
  7. MONOPRIL [Concomitant]
     Indication: HYPERTENSION
     Dosage: 20 MG, QD
  8. TAGAMET [Concomitant]
     Dosage: UNK, BID
  9. ELAVIL [Concomitant]
     Dosage: 50 MG, QD
  10. HYDROCODONE BITARTRATE [Concomitant]
  11. RADIATION [Concomitant]
     Indication: PAIN
  12. DURAGESIC-100 [Concomitant]
     Indication: PAIN
  13. VICODIN [Concomitant]
     Indication: PAIN
  14. TEGRETOL [Concomitant]
  15. FLEXERIL [Concomitant]
  16. RANITIDINE [Concomitant]
  17. NAPROXEN [Concomitant]
  18. OXYCODONE [Concomitant]
  19. NEURONTIN [Concomitant]
  20. SINEMET [Concomitant]
  21. PERCOCET [Concomitant]
  22. SENOKOT                                 /UNK/ [Concomitant]
  23. DOXIL [Concomitant]
  24. PREDNISONE [Concomitant]
  25. DEXAMETHASONE [Concomitant]
  26. SENNA [Concomitant]
  27. AMITIZA [Concomitant]
     Indication: CONSTIPATION
     Dosage: UNK
  28. CARBIDOPA + LEVODOPA [Concomitant]
     Dosage: UNK
  29. FERROUS SULFATE TAB [Concomitant]
     Dosage: UNK
  30. IOPHEN DM [Concomitant]
     Dosage: UNK
  31. CLOTRIMAZOLE [Concomitant]
     Dosage: UNK
  32. ALBUTEROL SULFATE AUTOHALER [Concomitant]
  33. CITALOPRAM HYDROBROMIDE [Concomitant]
  34. METHYLPHENIDATE HCL [Concomitant]
  35. LORAZEPAM [Concomitant]
  36. ATROPINE NASAL SOLUTION [Concomitant]
  37. VALIUM [Concomitant]
  38. PHENAZOPYRIDINE HCL TAB [Concomitant]
  39. PROCRIT                            /00909301/ [Concomitant]
  40. OCTREOTIDE ACETATE [Concomitant]
  41. ACETAMINOPHEN [Concomitant]
  42. AMITRIPTYLINE [Concomitant]
  43. CARBAMAZEPINE [Concomitant]
  44. CLONAZEPAM [Concomitant]
  45. CYCLOBENZAPRINE [Concomitant]
  46. PROTONIX [Concomitant]
  47. PROCHLORPERAZINE [Concomitant]
  48. FLUCONAZOLE [Concomitant]
  49. METRONIDAZOLE [Concomitant]
  50. CHLORHEXAMIDE [Concomitant]
  51. FENTANYL [Concomitant]
  52. LEVAQUIN [Concomitant]
  53. NYSTATIN [Concomitant]
  54. AMLODIPINE [Concomitant]
  55. MEGACE [Concomitant]
  56. FAMOTIDINE [Concomitant]
  57. MILK OF MAGNESIA TAB [Concomitant]
  58. BISACODYL [Concomitant]
  59. DOCUSATE [Concomitant]

REACTIONS (72)
  - ALOPECIA [None]
  - ANAEMIA [None]
  - BACK PAIN [None]
  - BALANCE DISORDER [None]
  - BONE DISORDER [None]
  - BONE LESION [None]
  - BONE NEOPLASM MALIGNANT [None]
  - BONE PAIN [None]
  - BREAST CANCER RECURRENT [None]
  - BRONCHITIS [None]
  - BUNDLE BRANCH BLOCK RIGHT [None]
  - CHANGE OF BOWEL HABIT [None]
  - CONSTIPATION [None]
  - DECREASED APPETITE [None]
  - DIARRHOEA [None]
  - DIPLOPIA [None]
  - DIZZINESS [None]
  - DYSPHAGIA [None]
  - DYSPNOEA [None]
  - ECZEMA [None]
  - FALL [None]
  - FATIGUE [None]
  - FISTULA [None]
  - GAIT DISTURBANCE [None]
  - HAEMATOCHEZIA [None]
  - HEADACHE [None]
  - HYPOAESTHESIA [None]
  - IMPAIRED HEALING [None]
  - INTERVERTEBRAL DISC PROTRUSION [None]
  - JOINT SPRAIN [None]
  - LEUKOPENIA [None]
  - LUMBAR SPINAL STENOSIS [None]
  - MALIGNANT NEOPLASM PROGRESSION [None]
  - MUSCULAR WEAKNESS [None]
  - MUSCULOSKELETAL CHEST PAIN [None]
  - MYALGIA [None]
  - MYOCARDIAL INFARCTION [None]
  - NAUSEA [None]
  - NECK MASS [None]
  - NUCLEAR MAGNETIC RESONANCE IMAGING ABNORMAL [None]
  - OEDEMA [None]
  - OEDEMA PERIPHERAL [None]
  - ORAL INFECTION [None]
  - ORAL PAIN [None]
  - OSTEOMYELITIS [None]
  - OSTEONECROSIS [None]
  - PAIN [None]
  - PAIN IN JAW [None]
  - PALMAR-PLANTAR ERYTHRODYSAESTHESIA SYNDROME [None]
  - PANCYTOPENIA [None]
  - PARAESTHESIA [None]
  - PARATHYROIDECTOMY [None]
  - POSTMENOPAUSAL HAEMORRHAGE [None]
  - PRIMARY SEQUESTRUM [None]
  - RESORPTION BONE INCREASED [None]
  - ROAD TRAFFIC ACCIDENT [None]
  - SINUS TACHYCARDIA [None]
  - STOMATITIS [None]
  - SWELLING [None]
  - SYNCOPE [None]
  - TENDERNESS [None]
  - THYROID CANCER [None]
  - THYROID NEOPLASM [None]
  - TOOTH EXTRACTION [None]
  - TOOTH INFECTION [None]
  - URINARY TRACT INFECTION [None]
  - VAGINAL INFECTION [None]
  - VERTIGO [None]
  - VISION BLURRED [None]
  - VOMITING [None]
  - VOMITING PROJECTILE [None]
  - WEIGHT DECREASED [None]
